FAERS Safety Report 21642976 (Version 2)
Quarter: 2022Q4

REPORT INFORMATION
  Report Type: Report from Study
  Country: RU (occurrence: RU)
  Receive Date: 20221125
  Receipt Date: 20221208
  Transmission Date: 20230113
  Serious: Yes (Death, Hospitalization, Other)
  Sender: FDA-Public Use
  Company Number: RU-002147023-NVSC2022RU265159

PATIENT
  Age: 86 Year
  Sex: Female
  Weight: 94 kg

DRUGS (2)
  1. KISQALI [Suspect]
     Active Substance: RIBOCICLIB
     Indication: Breast cancer metastatic
     Dosage: 600 MG, QD (ON DAYS 1-21 OF 28 DAYS CYCLE)
     Route: 048
     Dates: start: 20220614, end: 20220802
  2. ANASTROZOLE [Concomitant]
     Active Substance: ANASTROZOLE
     Indication: Product used for unknown indication
     Dosage: 1 MG, QD
     Route: 065

REACTIONS (5)
  - Atrial fibrillation [Fatal]
  - Cerebral infarction [Fatal]
  - General physical health deterioration [Fatal]
  - Cardiac arrest [Fatal]
  - Muscular weakness [Unknown]

NARRATIVE: CASE EVENT DATE: 20220819
